FAERS Safety Report 5928503-9 (Version None)
Quarter: 2008Q4

REPORT INFORMATION
  Report Type: 
  Country: None (occurrence: None)
  Receive Date: 20081023
  Receipt Date: 20081017
  Transmission Date: 20090506
  Serious: Yes (Hospitalization)
  Sender: FDA-Public Use
  Company Number: US-ELI_LILLY_AND_COMPANY-US200810004296

PATIENT
  Sex: Male
  Weight: 131.7 kg

DRUGS (3)
  1. BYETTA [Suspect]
     Indication: TYPE 2 DIABETES MELLITUS
     Route: 058
     Dates: end: 20080101
  2. GLYBURIDE [Concomitant]
     Indication: DIABETES MELLITUS
     Dosage: 5 MG, EACH MORNING
     Route: 048
  3. GLYBURIDE [Concomitant]
     Dosage: 2.5 MG, EACH EVENING
     Route: 048

REACTIONS (2)
  - CORONARY ARTERY BYPASS [None]
  - WEIGHT DECREASED [None]
